FAERS Safety Report 10993595 (Version 1)
Quarter: 2015Q2

REPORT INFORMATION
  Report Type: Spontaneous
  Country: US (occurrence: None)
  Receive Date: 20150406
  Receipt Date: 20150406
  Transmission Date: 20150821
  Serious: Yes (Hospitalization)
  Sender: FDA-Public Use
  Company Number: None

PATIENT
  Age: 56 Year
  Sex: Male
  Weight: 145.9 kg

DRUGS (1)
  1. PIOGLITAZONE [Suspect]
     Active Substance: PIOGLITAZONE
     Indication: DIABETES MELLITUS
     Route: 048
     Dates: start: 20141022, end: 20150303

REACTIONS (2)
  - Generalised oedema [None]
  - Ascites [None]

NARRATIVE: CASE EVENT DATE: 20150303
